FAERS Safety Report 18742851 (Version 8)
Quarter: 2023Q2

REPORT INFORMATION
  Report Type: Spontaneous
  Country: CA (occurrence: CA)
  Receive Date: 20210115
  Receipt Date: 20230421
  Transmission Date: 20230722
  Serious: Yes (Life-Threatening, Hospitalization, Other)
  Sender: FDA-Public Use
  Company Number: CA-AUROBINDO-AUR-APL-2021-000872

PATIENT
  Age: 86 Year
  Sex: Male
  Weight: 152 kg

DRUGS (31)
  1. GABAPENTIN [Suspect]
     Active Substance: GABAPENTIN
     Indication: Product used for unknown indication
     Dosage: 300 MILLIGRAM, ONCE A DAY
     Route: 048
  2. MONTELUKAST [Suspect]
     Active Substance: MONTELUKAST SODIUM
     Indication: Product used for unknown indication
     Dosage: 5 MILLIGRAM, ONCE A DAY
     Route: 048
  3. MONTELUKAST [Suspect]
     Active Substance: MONTELUKAST SODIUM
     Dosage: 1 DOSAGE FORM, ONCE A DAY
     Route: 065
  4. OLMESARTAN [Suspect]
     Active Substance: OLMESARTAN
     Indication: Product used for unknown indication
     Dosage: 40 MILLIGRAM, ONCE A DAY
     Route: 048
  5. PANTOPRAZOLE [Suspect]
     Active Substance: PANTOPRAZOLE
     Indication: Product used for unknown indication
     Dosage: 40 MILLIGRAM, ONCE A DAY
     Route: 048
  6. FUROSEMIDE [Suspect]
     Active Substance: FUROSEMIDE
     Indication: Product used for unknown indication
     Dosage: 80 MILLIGRAM, ONCE A DAY
     Route: 048
  7. ASPIRIN [Suspect]
     Active Substance: ASPIRIN
     Indication: Product used for unknown indication
     Dosage: 1000 INTERNATIONAL UNIT, ONCE A DAY
     Route: 048
  8. ASPIRIN [Suspect]
     Active Substance: ASPIRIN
     Dosage: 1 DOSAGE FORM, ONCE A DAY
     Route: 048
  9. ALENDRONATE SODIUM\CHOLECALCIFEROL [Suspect]
     Active Substance: ALENDRONATE SODIUM\CHOLECALCIFEROL
     Indication: Product used for unknown indication
     Dosage: 1 DOSAGE FORM, ONCE A DAY
     Route: 048
  10. ALLOPURINOL [Suspect]
     Active Substance: ALLOPURINOL
     Indication: Product used for unknown indication
     Dosage: 200 MILLIGRAM, ONCE A DAY
     Route: 048
  11. CHOLECALCIFEROL [Suspect]
     Active Substance: CHOLECALCIFEROL
     Indication: Product used for unknown indication
     Dosage: 1000 INTERNATIONAL UNIT, ONCE A DAY
     Route: 048
  12. CHOLECALCIFEROL [Suspect]
     Active Substance: CHOLECALCIFEROL
     Dosage: 1 DOSAGE FORM, ONCE A DAY
     Route: 048
  13. ELIQUIS [Suspect]
     Active Substance: APIXABAN
     Indication: Product used for unknown indication
     Dosage: 5 MILLIGRAM, TWO TIMES A DAY
     Route: 048
  14. BISOPROLOL FUMARATE [Suspect]
     Active Substance: BISOPROLOL FUMARATE
     Indication: Product used for unknown indication
     Dosage: 2.5 MILLIGRAM, ONCE A DAY
     Route: 048
  15. BREO ELLIPTA [Suspect]
     Active Substance: FLUTICASONE FUROATE\VILANTEROL TRIFENATATE
     Indication: Product used for unknown indication
     Dosage: 1 DOSAGE FORM, ONCE A DAY
  16. FORMOTEROL FUMARATE\MOMETASONE FUROATE [Suspect]
     Active Substance: FORMOTEROL FUMARATE\MOMETASONE FUROATE
     Indication: Product used for unknown indication
     Dosage: UNK
     Route: 065
  17. OLMESARTAN MEDOXOMIL [Suspect]
     Active Substance: OLMESARTAN MEDOXOMIL
     Indication: Product used for unknown indication
     Dosage: 40 MILLIGRAM, ONCE A DAY
     Route: 048
  18. PREDNISONE [Suspect]
     Active Substance: PREDNISONE
     Indication: Product used for unknown indication
     Dosage: 15 MILLIGRAM, ONCE A DAY
     Route: 065
  19. PROPECIA [Suspect]
     Active Substance: FINASTERIDE
     Indication: Product used for unknown indication
     Dosage: 5 MILLIGRAM, ONCE A DAY
     Route: 048
  20. PROPECIA [Suspect]
     Active Substance: FINASTERIDE
     Dosage: 0.5 MILLIGRAM, ONCE A DAY
     Route: 048
  21. ALBUTEROL SULFATE [Suspect]
     Active Substance: ALBUTEROL SULFATE
     Indication: Product used for unknown indication
     Dosage: 1 DOSAGE FORM, ONCE A DAY
     Route: 065
  22. SINGULAIR [Suspect]
     Active Substance: MONTELUKAST SODIUM
     Indication: Product used for unknown indication
     Dosage: 1 DOSAGE FORM, ONCE A DAY
     Route: 065
  23. SPIRIVA [Suspect]
     Active Substance: TIOTROPIUM BROMIDE MONOHYDRATE
     Indication: Product used for unknown indication
     Dosage: 1 DOSAGE FORM, ONCE A DAY
     Route: 065
  24. TAMSULOSIN [Suspect]
     Active Substance: TAMSULOSIN
     Indication: Product used for unknown indication
     Dosage: 0.4 MILLIGRAM, ONCE A DAY
     Route: 048
  25. THEOPHYLLINE [Suspect]
     Active Substance: THEOPHYLLINE
     Indication: Product used for unknown indication
     Dosage: 100 MILLIGRAM, TWO TIMES A DAY
     Route: 048
  26. UMECLIDINIUM [Suspect]
     Active Substance: UMECLIDINIUM
     Indication: Product used for unknown indication
     Dosage: 1 DOSAGE FORM, ONCE A DAY
  27. UMECLIDINIUM [Suspect]
     Active Substance: UMECLIDINIUM
     Dosage: 1 DOSAGE FORM, ONCE A DAY
     Route: 065
  28. UMECLIDINIUM [Suspect]
     Active Substance: UMECLIDINIUM
     Dosage: 1 DOSAGE FORM, ONCE A DAY
     Route: 048
  29. VITAMIN D3 [Suspect]
     Active Substance: CHOLECALCIFEROL
     Indication: Product used for unknown indication
     Dosage: 1000 INTERNATIONAL UNIT, ONCE A DAY
     Route: 048
  30. VITAMIN D3 [Suspect]
     Active Substance: CHOLECALCIFEROL
     Dosage: 1 DOSAGE FORM, ONCE A DAY
     Route: 048
  31. ZENHALE [Suspect]
     Active Substance: FORMOTEROL FUMARATE\MOMETASONE FUROATE
     Indication: Product used for unknown indication
     Dosage: UNK
     Route: 065

REACTIONS (36)
  - Adverse event [Unknown]
  - Anxiety [Unknown]
  - Aortic valve stenosis [Unknown]
  - Asthma [Unknown]
  - Atrial fibrillation [Unknown]
  - Benign prostatic hyperplasia [Unknown]
  - Bronchial secretion retention [Unknown]
  - Bronchial wall thickening [Unknown]
  - Bronchiectasis [Unknown]
  - Cardiac failure congestive [Unknown]
  - Chest X-ray abnormal [Unknown]
  - Cough [Unknown]
  - Depression [Unknown]
  - Diastolic dysfunction [Unknown]
  - Dizziness [Unknown]
  - Dyspnoea [Unknown]
  - Full blood count abnormal [Unknown]
  - Fatigue [Unknown]
  - Gastrooesophageal reflux disease [Unknown]
  - Gout [Unknown]
  - Hypertension [Unknown]
  - Hypoacusis [Unknown]
  - Hospitalisation [Unknown]
  - Intervertebral disc degeneration [Unknown]
  - Loss of personal independence in daily activities [Unknown]
  - Obstruction [Unknown]
  - Obstructive airways disorder [Unknown]
  - Osteoporosis [Unknown]
  - Pain in extremity [Unknown]
  - Productive cough [Unknown]
  - Pulmonary function test abnormal [Unknown]
  - Right atrial hypertrophy [Unknown]
  - Right ventricular hypertrophy [Unknown]
  - Sleep apnoea syndrome [Unknown]
  - Wheezing [Unknown]
  - Therapeutic product effect incomplete [Unknown]
